APPROVED DRUG PRODUCT: OFLOXACIN
Active Ingredient: OFLOXACIN
Strength: 400MG
Dosage Form/Route: TABLET;ORAL
Application: A077098 | Product #003 | TE Code: AB
Applicant: DR REDDYS LABORATORIES LTD
Approved: Feb 10, 2006 | RLD: No | RS: No | Type: RX